FAERS Safety Report 10438368 (Version 1)
Quarter: 2014Q3

REPORT INFORMATION
  Report Type: Spontaneous
  Country: US (occurrence: US)
  Receive Date: 20140908
  Receipt Date: 20140908
  Transmission Date: 20150326
  Serious: Yes (Other)
  Sender: FDA-Public Use
  Company Number: US-BRISTOL-MYERS SQUIBB COMPANY-19847649

PATIENT
  Age: 44 Year
  Sex: Male
  Weight: 82.08 kg

DRUGS (2)
  1. ABILIFY [Suspect]
     Active Substance: ARIPIPRAZOLE
     Dates: start: 2013
  2. LITHIUM [Concomitant]
     Active Substance: LITHIUM CARBONATE

REACTIONS (3)
  - Insomnia [Unknown]
  - Tremor [Not Recovered/Not Resolved]
  - Suicidal ideation [Unknown]

NARRATIVE: CASE EVENT DATE: 2013
